FAERS Safety Report 18527976 (Version 1)
Quarter: 2020Q4

REPORT INFORMATION
  Report Type: Spontaneous
  Country: RU (occurrence: RU)
  Receive Date: 20201120
  Receipt Date: 20201120
  Transmission Date: 20210114
  Serious: Yes (Other)
  Sender: FDA-Public Use
  Company Number: RU-ASTRAZENECA-2020SF51892

PATIENT
  Age: 21 Year
  Sex: Female
  Weight: 56 kg

DRUGS (4)
  1. SEROQUEL [Suspect]
     Active Substance: QUETIAPINE FUMARATE
     Indication: MIXED ANXIETY AND DEPRESSIVE DISORDER
     Dosage: 1/2 A TABLET AT NIGHT
     Route: 048
  2. VELAFAX [Concomitant]
     Active Substance: VENLAFAXINE HYDROCHLORIDE
  3. SEROQUEL [Suspect]
     Active Substance: QUETIAPINE FUMARATE
     Indication: MIXED ANXIETY AND DEPRESSIVE DISORDER
     Dosage: 1/8 A TABLET
     Route: 048
  4. SEROQUEL [Suspect]
     Active Substance: QUETIAPINE FUMARATE
     Indication: MIXED ANXIETY AND DEPRESSIVE DISORDER
     Dosage: 1/4 A TABLET
     Route: 048

REACTIONS (5)
  - Amnesia [Recovered/Resolved]
  - Tongue biting [Recovered/Resolved]
  - Off label use [Unknown]
  - Muscle spasms [Not Recovered/Not Resolved]
  - Epilepsy [Recovered/Resolved]
